FAERS Safety Report 8060329-5 (Version None)
Quarter: 2012Q1

REPORT INFORMATION
  Report Type: 
  Country: None (occurrence: None)
  Receive Date: 20120120
  Receipt Date: 20120116
  Transmission Date: 20120608
  Serious: No
  Sender: FDA-Public Use
  Company Number: US-PFIZER INC-2012013066

PATIENT
  Sex: Female
  Weight: 47.619 kg

DRUGS (2)
  1. PREMARIN [Suspect]
     Indication: VULVOVAGINAL DRYNESS
     Dosage: 1 G, DAILY
     Route: 067
     Dates: start: 20120101, end: 20120102
  2. EXTRA STRENGTH TYLENOL [Concomitant]
     Indication: NECK PAIN
     Dosage: UNK, AS NEEDED

REACTIONS (2)
  - HEADACHE [None]
  - DISCOMFORT [None]
